FAERS Safety Report 11088251 (Version 5)
Quarter: 2015Q4

REPORT INFORMATION
  Report Type: Spontaneous
  Country: US (occurrence: US)
  Receive Date: 20150504
  Receipt Date: 20151117
  Transmission Date: 20160304
  Serious: Yes (Hospitalization)
  Sender: FDA-Public Use
  Company Number: US-PFIZER INC-2015152178

PATIENT
  Age: 91 Year
  Sex: Female
  Weight: 70 kg

DRUGS (54)
  1. LEVOTHYROXINE. [Concomitant]
     Active Substance: LEVOTHYROXINE
     Indication: HYPERTHYROIDISM
     Dosage: 50 ?G, ALTERNATE DAY(1AM BEFORE BREAKFAST)
     Route: 048
  2. OSTEO BI-FLEX [Concomitant]
     Active Substance: CHONDROITIN SULFATE A\GLUCOSAMINE
     Indication: ARTHROPATHY
  3. SINGULAIR [Concomitant]
     Active Substance: MONTELUKAST SODIUM
     Indication: HYPERSENSITIVITY
     Dosage: 10 MG, 3X/DAY
     Route: 048
  4. LATANOPROST. [Concomitant]
     Active Substance: LATANOPROST
     Indication: GLAUCOMA
     Dosage: 1 GTT, 1X/DAY AT BEDTIME
  5. BENADRYL [Concomitant]
     Active Substance: DIPHENHYDRAMINE HYDROCHLORIDE
     Indication: HYPERSENSITIVITY
  6. WARFARIN [Concomitant]
     Active Substance: WARFARIN
     Dosage: UNK (CHANGE DAILY 1MG TO 3MG)
     Route: 048
  7. ZENPEP [Concomitant]
     Active Substance: PANCRELIPASE\PANCRELIPASE AMYLASE\PANCRELIPASE LIPASE\PANCRELIPASE PROTEASE
     Dosage: 25000 IU, UNK
     Route: 048
  8. CALCITONIN [Concomitant]
     Active Substance: CALCITONIN
     Indication: BONE DISORDER
     Dosage: UNK
     Route: 045
  9. VITAMIN D3 [Concomitant]
     Active Substance: CHOLECALCIFEROL
     Indication: RENAL DISORDER
     Dosage: 1000 IU, 2X/DAY
     Route: 048
  10. VITAMIN D3 [Concomitant]
     Active Substance: CHOLECALCIFEROL
     Indication: BREAST DISORDER
  11. CALTRATE 600+D [Concomitant]
     Indication: BONE DENSITY DECREASED
     Dosage: 2 DF, 3X/DAY (1 AM+ PM )
     Route: 048
  12. POTASSIUM [Concomitant]
     Active Substance: POTASSIUM
     Indication: CARDIAC DISORDER
  13. VENTOLIN HFA [Concomitant]
     Active Substance: ALBUTEROL SULFATE
     Dosage: 2 DF, AS NEEDED (AM PM 1 SPRAY A TIME)
     Route: 055
  14. WARFARIN [Concomitant]
     Active Substance: WARFARIN
     Dosage: 3 MG, UNK (SOMETIME 2 MG, SOMETIME, MOSTLY 3 MG, AFTER EVENING MEAL WITH NICE AMOUNT OF WATER)
  15. OSTEO BI-FLEX [Concomitant]
     Active Substance: CHONDROITIN SULFATE A\GLUCOSAMINE
     Indication: BONE DISORDER
     Dosage: 1 DF, 1X/DAY
     Route: 048
  16. VITAMIN D3 [Concomitant]
     Active Substance: CHOLECALCIFEROL
     Indication: FUNCTIONAL GASTROINTESTINAL DISORDER
  17. MONTELUKAST [Concomitant]
     Active Substance: MONTELUKAST SODIUM
     Dosage: 10 MG, 1X/DAY
     Route: 048
  18. REVATIO [Suspect]
     Active Substance: SILDENAFIL CITRATE
     Indication: PULMONARY HYPERTENSION
     Dosage: 20 MG, 3X/DAY ((1) TAB PO TID (AM, NOON + EVENING))
     Route: 048
     Dates: start: 2008
  19. AZOPT [Concomitant]
     Active Substance: BRINZOLAMIDE
     Indication: GLAUCOMA
     Dosage: 1 GTT, DAILY (AM+ PM)
  20. AZOPT [Concomitant]
     Active Substance: BRINZOLAMIDE
     Dosage: 2 GTT, 1X/DAY
  21. TYLENOL EXTRA STRENGTH [Concomitant]
     Active Substance: ACETAMINOPHEN
     Indication: PAIN IN EXTREMITY
  22. VITAMIN D3 [Concomitant]
     Active Substance: CHOLECALCIFEROL
     Indication: BONE DISORDER
     Dosage: 5000 IU, 3X/DAY
     Route: 048
  23. MUCINEX [Concomitant]
     Active Substance: GUAIFENESIN
     Indication: SECRETION DISCHARGE
  24. BENADRYL [Concomitant]
     Active Substance: DIPHENHYDRAMINE HYDROCHLORIDE
     Indication: RASH
     Dosage: 25 MG, AS NEEDED
     Route: 048
  25. NEURONTIN [Concomitant]
     Active Substance: GABAPENTIN
     Indication: PAIN IN EXTREMITY
  26. NEURONTIN [Concomitant]
     Active Substance: GABAPENTIN
     Indication: DYSPNOEA
  27. LASIX [Concomitant]
     Active Substance: FUROSEMIDE
     Indication: FLUID RETENTION
     Dosage: 40MG IN AM, 20MG IN PM
     Route: 048
  28. TYLENOL EXTRA STRENGTH [Concomitant]
     Active Substance: ACETAMINOPHEN
     Indication: HEADACHE
  29. OMEPRAZOLE. [Concomitant]
     Active Substance: OMEPRAZOLE
     Dosage: 20 MG, 1X/DAY(TAKE 1 EVERY MORNING)
     Route: 048
  30. MAGNESIUM OXIDE. [Concomitant]
     Active Substance: MAGNESIUM OXIDE
     Indication: CARDIAC DISORDER
  31. MUCINEX [Concomitant]
     Active Substance: GUAIFENESIN
     Indication: HYPERSENSITIVITY
  32. BENADRYL [Concomitant]
     Active Substance: DIPHENHYDRAMINE HYDROCHLORIDE
     Indication: LIP SWELLING
  33. GABAPENTIN. [Concomitant]
     Active Substance: GABAPENTIN
     Indication: DYSPNOEA
     Dosage: 100 MG, 3X/DAY
     Route: 048
     Dates: start: 20150827
  34. NEURONTIN [Concomitant]
     Active Substance: GABAPENTIN
     Indication: BACK PAIN
     Dosage: 100 MG, 4 IN PM BEFORE BEDTIME ABOUT 6 YEARS
  35. REQUIP [Concomitant]
     Active Substance: ROPINIROLE HYDROCHLORIDE
     Indication: RESTLESS LEGS SYNDROME
     Dosage: 1 MG, 2X/DAY (NOON AND BEFORE BEDTIME)
     Route: 048
  36. REQUIP [Concomitant]
     Active Substance: ROPINIROLE HYDROCHLORIDE
     Dosage: 2 MG, 1X/DAY(QHS)
     Dates: start: 20150827
  37. SIMVASTATIN. [Concomitant]
     Active Substance: SIMVASTATIN
     Indication: BLOOD CHOLESTEROL INCREASED
     Dosage: 40 MG, 1X/DAY BEDTIME PM
     Route: 048
  38. WARFARIN [Concomitant]
     Active Substance: WARFARIN
     Dosage: 2 MG, UNK (SOMETIME 2 MG, SOMETIME, MOSTLY 3 MG, AFTER EVENING MEAL WITH NICE AMOUNT OF WATER)
  39. CONCON [Concomitant]
     Indication: BLOOD POTASSIUM ABNORMAL
     Dosage: UNK
  40. TYLENOL EXTRA STRENGTH [Concomitant]
     Active Substance: ACETAMINOPHEN
     Indication: BACK PAIN
  41. POTASSIUM [Concomitant]
     Active Substance: POTASSIUM
     Indication: BONE DISORDER
     Dosage: 10 MEQ, 3X/DAY (3 DAILY WITH MEALS)
     Route: 048
  42. MAGNESIUM OXIDE. [Concomitant]
     Active Substance: MAGNESIUM OXIDE
     Indication: BONE DISORDER
     Dosage: 400 MG, 3X/DAY
     Route: 048
  43. VITAMIN E [Concomitant]
     Active Substance: .ALPHA.-TOCOPHEROL
     Indication: LUNG DISORDER
     Dosage: 1200 IU, DAILY
     Dates: start: 1958
  44. VITAMIN E [Concomitant]
     Active Substance: .ALPHA.-TOCOPHEROL
     Dosage: 400 IU, DAILY
     Route: 048
  45. BENADRYL [Concomitant]
     Active Substance: DIPHENHYDRAMINE HYDROCHLORIDE
     Indication: SWOLLEN TONGUE
  46. ROPINIROLE HCL [Concomitant]
     Active Substance: ROPINIROLE HYDROCHLORIDE
     Indication: DYSPNOEA
     Dosage: 2 MG, 1X/DAY (Q HS)
  47. TYLENOL EXTRA STRENGTH [Concomitant]
     Active Substance: ACETAMINOPHEN
     Indication: PAIN
     Dosage: 2 DF, AS NEEDED
  48. SYMBICORT [Concomitant]
     Active Substance: BUDESONIDE\FORMOTEROL FUMARATE DIHYDRATE
     Dosage: 2 DF, 2X/DAY
     Dates: end: 20150527
  49. SYMBICORT [Concomitant]
     Active Substance: BUDESONIDE\FORMOTEROL FUMARATE DIHYDRATE
     Dosage: 1 DF, DAILY
     Dates: start: 20150602
  50. SYMBICORT [Concomitant]
     Active Substance: BUDESONIDE\FORMOTEROL FUMARATE DIHYDRATE
     Dosage: UNK ?G, 2X/DAY (BUDESONIDE 80 MCG, FORMOTEROL FUMARATE 4.5MCG)
  51. MUCINEX [Concomitant]
     Active Substance: GUAIFENESIN
     Indication: COUGH
     Dosage: 600 MG, AS NEEDED
     Route: 048
     Dates: start: 2003
  52. MUCINEX [Concomitant]
     Active Substance: GUAIFENESIN
     Indication: RHINORRHOEA
  53. WARFARIN [Concomitant]
     Active Substance: WARFARIN
     Dosage: 6 DAYS ON 3 MG, 1 DAY ON 2 MG
     Dates: start: 2003
  54. FUROSEMIDE. [Concomitant]
     Active Substance: FUROSEMIDE
     Dosage: 40 MG, 1X/DAY [(2X20) AT BREAKFAST 20MG WITH SUPPN]
     Route: 048

REACTIONS (5)
  - Body temperature decreased [Unknown]
  - Myopathy [Unknown]
  - Burning sensation [Unknown]
  - Sinusitis [Not Recovered/Not Resolved]
  - Condition aggravated [Not Recovered/Not Resolved]
